FAERS Safety Report 8023175-4 (Version None)
Quarter: 2012Q1

REPORT INFORMATION
  Report Type: 
  Country: None (occurrence: None)
  Receive Date: 20120104
  Receipt Date: 20111220
  Transmission Date: 20120608
  Serious: Yes (Other)
  Sender: FDA-Public Use
  Company Number: US-UCBSA-048221

PATIENT
  Age: 59 Year
  Sex: Female

DRUGS (2)
  1. PHENTERMINE [Suspect]
  2. FENFLURAMINE [Suspect]

REACTIONS (2)
  - PULMONARY HYPERTENSION [None]
  - CARDIAC VALVE DISEASE [None]
